FAERS Safety Report 20022229 (Version 1)
Quarter: 2021Q4

REPORT INFORMATION
  Report Type: Spontaneous
  Country: HR (occurrence: HR)
  Receive Date: 20211102
  Receipt Date: 20211102
  Transmission Date: 20220303
  Serious: Yes (Hospitalization, Other)
  Sender: FDA-Public Use
  Company Number: HR-PBT-000010

PATIENT
  Age: 63 Year

DRUGS (10)
  1. TACROLIMUS [Suspect]
     Active Substance: TACROLIMUS
     Indication: Prophylaxis against transplant rejection
     Route: 065
  2. TACROLIMUS [Suspect]
     Active Substance: TACROLIMUS
     Indication: Prophylaxis against transplant rejection
     Dosage: DOSE REDUCTION
     Route: 065
     Dates: start: 202104
  3. TACROLIMUS [Suspect]
     Active Substance: TACROLIMUS
     Indication: Prophylaxis against transplant rejection
     Dosage: DOSE REDUCTION
     Route: 065
     Dates: start: 202104
  4. REMDESIVIR [Suspect]
     Active Substance: REMDESIVIR
     Indication: COVID-19
     Route: 065
     Dates: start: 202104, end: 20210503
  5. REMDESIVIR [Suspect]
     Active Substance: REMDESIVIR
     Indication: Pneumonia
     Route: 065
     Dates: start: 202104, end: 20210503
  6. ATORVASTATIN [Suspect]
     Active Substance: ATORVASTATIN
     Indication: Immunosuppression
     Route: 065
     Dates: start: 201504, end: 20210513
  7. EZETIMIBE [Suspect]
     Active Substance: EZETIMIBE
     Indication: Immunosuppression
     Route: 065
     Dates: start: 201504, end: 20210513
  8. MYCOPHENOLATE MOFETIL [Suspect]
     Active Substance: MYCOPHENOLATE MOFETIL
     Indication: Prophylaxis against transplant rejection
     Route: 065
  9. CEFTRIAXONE [Concomitant]
     Active Substance: CEFTRIAXONE
     Indication: COVID-19
     Route: 065
  10. DEXAMETHASONE [Concomitant]
     Active Substance: DEXAMETHASONE
     Indication: Pneumonia
     Route: 065

REACTIONS (5)
  - Myopathy toxic [Recovered/Resolved]
  - Liver injury [Recovered/Resolved]
  - Myocardial infarction [Recovered/Resolved]
  - COVID-19 [Recovered/Resolved]
  - Pneumonia [Unknown]

NARRATIVE: CASE EVENT DATE: 20210401
